FAERS Safety Report 17023244 (Version 3)
Quarter: 2020Q1

REPORT INFORMATION
  Report Type: Report from Study
  Country: None (occurrence: CN)
  Receive Date: 20191112
  Receipt Date: 20200115
  Transmission Date: 20200409
  Serious: Yes (Hospitalization)
  Sender: FDA-Public Use
  Company Number: CN-ABBVIE-19P-035-2989891-00

PATIENT
  Age: 73 Year
  Sex: Male
  Weight: 86 kg

DRUGS (51)
  1. FLUOROMETHOLONE EYE DROPS [Concomitant]
     Indication: OCULAR DISCOMFORT
  2. PANTOPRAZOLE SODIUM. [Concomitant]
     Active Substance: PANTOPRAZOLE SODIUM
     Route: 042
     Dates: start: 20190627, end: 20190703
  3. AZACITIDINE. [Suspect]
     Active Substance: AZACITIDINE
     Dosage: DAYS 1-7 OF EACH 28-DAY CYCLE
     Route: 058
     Dates: start: 20190921, end: 20190927
  4. AZACITIDINE. [Suspect]
     Active Substance: AZACITIDINE
     Dosage: DAYS 1-7 OF EACH 28-DAY CYCLE
     Route: 058
     Dates: start: 20191225
  5. COMPOUND DYCLONINE [Concomitant]
     Indication: INFECTION PROPHYLAXIS
     Route: 061
     Dates: start: 20180710
  6. COMPOUND HUANGQINLONG TEA PLUG [Concomitant]
     Indication: INFECTION PROPHYLAXIS
     Route: 054
     Dates: start: 20180710
  7. INSULIN GLARGINE [Concomitant]
     Active Substance: INSULIN GLARGINE
     Dosage: QN
     Route: 058
     Dates: start: 20190920, end: 20191105
  8. FEBUXOSTAT. [Concomitant]
     Active Substance: FEBUXOSTAT
     Route: 048
     Dates: start: 20181116, end: 20181122
  9. CASPOFUNGIN [Concomitant]
     Active Substance: CASPOFUNGIN
     Indication: PNEUMONIA
     Route: 042
     Dates: start: 20190724, end: 201908
  10. VENETOCLAX. [Suspect]
     Active Substance: VENETOCLAX
     Route: 048
     Dates: start: 20191225
  11. POVIDONE LODINE SOLUTION 5% [Concomitant]
     Indication: INFECTION PROPHYLAXIS
     Dosage: 1 APPLICATION
     Route: 061
     Dates: start: 20180710
  12. INSULIN GLARGINE [Concomitant]
     Active Substance: INSULIN GLARGINE
     Dosage: QN
     Route: 058
     Dates: start: 20190626, end: 20190703
  13. FEBUXOSTAT. [Concomitant]
     Active Substance: FEBUXOSTAT
     Indication: PROPHYLAXIS
     Route: 048
     Dates: start: 20180729, end: 20180812
  14. SODIUM BICARBONATE INJECTION 5% [Concomitant]
     Route: 042
     Dates: start: 20180904, end: 20180914
  15. TROPISETRON [Concomitant]
     Active Substance: TROPISETRON
     Indication: GASTROINTESTINAL DISORDER PROPHYLAXIS
     Route: 042
     Dates: start: 20190921, end: 20190927
  16. PANTOPRAZOLE SODIUM. [Concomitant]
     Active Substance: PANTOPRAZOLE SODIUM
     Route: 042
     Dates: start: 20190208, end: 20190214
  17. VENETOCLAX. [Suspect]
     Active Substance: VENETOCLAX
     Route: 048
     Dates: start: 20180801, end: 20191011
  18. AZACITIDINE. [Suspect]
     Active Substance: AZACITIDINE
     Indication: ACUTE MYELOID LEUKAEMIA
     Dosage: DAYS 1-7 OF EACH 28-DAY CYCLE
     Route: 058
     Dates: start: 20180730, end: 20190703
  19. COMPOUND SODIUM BICARBONATE MOUTHWASH [Concomitant]
     Indication: INFECTION PROPHYLAXIS
     Dosage: 1 CUP AS REQUIRED
     Route: 048
     Dates: start: 20180710
  20. COMPOUND HUANGQINLONG TEA PLUG [Concomitant]
     Indication: PHYTOTHERAPY
  21. TEICOPLANIN [Concomitant]
     Active Substance: TEICOPLANIN
     Indication: PNEUMONIA
     Route: 042
     Dates: start: 20190728
  22. NORMAL SALINE SOLUTION (0.9% SODIUM CHLORIDE) [Concomitant]
     Route: 042
     Dates: start: 20180803, end: 20180803
  23. PANTOPRAZOLE SODIUM. [Concomitant]
     Active Substance: PANTOPRAZOLE SODIUM
     Indication: PROPHYLAXIS
     Route: 042
     Dates: start: 20180907, end: 20180913
  24. PANTOPRAZOLE SODIUM. [Concomitant]
     Active Substance: PANTOPRAZOLE SODIUM
     Indication: PROPHYLAXIS
     Route: 042
     Dates: start: 20181015, end: 20181021
  25. PANTOPRAZOLE SODIUM. [Concomitant]
     Active Substance: PANTOPRAZOLE SODIUM
     Route: 042
     Dates: start: 20190404, end: 20190410
  26. INSULIN GLARGINE [Concomitant]
     Active Substance: INSULIN GLARGINE
     Indication: DIABETES MELLITUS
     Dosage: QN
     Route: 058
     Dates: start: 20190410
  27. PANTOPRAZOLE SODIUM. [Concomitant]
     Active Substance: PANTOPRAZOLE SODIUM
     Indication: GASTROINTESTINAL DISORDER PROPHYLAXIS
     Route: 042
     Dates: start: 20181115, end: 20181122
  28. HIRUDOID [Concomitant]
     Active Substance: GLYCOSAMINOGLYCANS
     Indication: PROPHYLAXIS
  29. SODIUM HYALURONATE EYE DROPS [Concomitant]
     Indication: DRY EYE
     Dosage: 1 APPLICATION
     Route: 047
     Dates: start: 20190312
  30. ACARBOSE. [Concomitant]
     Active Substance: ACARBOSE
     Route: 048
     Dates: start: 20190515, end: 20190626
  31. ACARBOSE. [Concomitant]
     Active Substance: ACARBOSE
     Dates: start: 201907
  32. SODIUM BICARBONATE INJECTION 5% [Concomitant]
     Indication: PROPHYLAXIS
     Route: 042
     Dates: start: 20180729, end: 20180802
  33. NORMAL SALINE SOLUTION (0.9% SODIUM CHLORIDE) [Concomitant]
     Indication: PROPHYLAXIS
     Route: 042
     Dates: start: 20180729, end: 20180802
  34. CASPOFUNGIN [Concomitant]
     Active Substance: CASPOFUNGIN
     Route: 042
     Dates: start: 20190923, end: 20191029
  35. VENETOCLAX. [Suspect]
     Active Substance: VENETOCLAX
     Route: 048
     Dates: start: 20180731, end: 20180731
  36. MUPIROCIN OINTMENT 2% [Concomitant]
     Active Substance: MUPIROCIN
     Indication: INFECTION PROPHYLAXIS
     Dosage: MODERATE AMOUNT
     Route: 003
     Dates: start: 20180907
  37. CHLORHEXIDINIDAZOLE GARGLE [Concomitant]
     Indication: INFECTION PROPHYLAXIS
     Dosage: 1 APPLICATION
     Route: 002
     Dates: start: 20180908
  38. ACARBOSE. [Concomitant]
     Active Substance: ACARBOSE
     Indication: DIABETES MELLITUS
     Route: 048
     Dates: start: 20181121, end: 20181201
  39. FEBUXOSTAT. [Concomitant]
     Active Substance: FEBUXOSTAT
     Route: 048
     Dates: start: 20180925, end: 20181004
  40. PANTOPRAZOLE SODIUM. [Concomitant]
     Active Substance: PANTOPRAZOLE SODIUM
     Indication: GASTROINTESTINAL DISORDER PROPHYLAXIS
     Route: 042
     Dates: start: 20180730, end: 20180812
  41. VENETOCLAX. [Suspect]
     Active Substance: VENETOCLAX
     Indication: ACUTE MYELOID LEUKAEMIA
     Route: 048
     Dates: start: 20180730, end: 20180730
  42. HIRUDOID [Concomitant]
     Active Substance: GLYCOSAMINOGLYCANS
     Indication: PAIN PROPHYLAXIS
     Route: 003
     Dates: start: 20180801
  43. IODINE GLYCEROL [Concomitant]
     Indication: INFECTION PROPHYLAXIS
     Dosage: 1 APPLICATION
     Route: 061
     Dates: start: 20180710
  44. FLUOROMETHOLONE EYE DROPS [Concomitant]
     Indication: CATARACT
     Dosage: 1 APPLICATION
     Route: 047
     Dates: start: 20190523
  45. FLUOROMETHOLONE EYE DROPS [Concomitant]
     Indication: CONJUNCTIVAL DISORDER
  46. ACARBOSE. [Concomitant]
     Active Substance: ACARBOSE
     Route: 048
     Dates: start: 20190626, end: 20190703
  47. INSULIN INJECTION [Concomitant]
     Active Substance: INSULIN NOS
     Indication: DIABETES MELLITUS
     Dates: start: 201907
  48. FEBUXOSTAT. [Concomitant]
     Active Substance: FEBUXOSTAT
     Indication: HYPERURICAEMIA
     Route: 048
     Dates: start: 20180904, end: 20180917
  49. SODIUM BICARBONATE INJECTION 5% [Concomitant]
     Indication: HYPERURICAEMIA
     Route: 042
     Dates: start: 20180803, end: 20180803
  50. PANTOPRAZOLE SODIUM. [Concomitant]
     Active Substance: PANTOPRAZOLE SODIUM
     Route: 042
     Dates: start: 20181225, end: 20181231
  51. PANTOPRAZOLE SODIUM. [Concomitant]
     Active Substance: PANTOPRAZOLE SODIUM
     Route: 042
     Dates: start: 20190921, end: 20190927

REACTIONS (1)
  - Pneumonia [Not Recovered/Not Resolved]

NARRATIVE: CASE EVENT DATE: 20190926
